FAERS Safety Report 17548280 (Version 5)
Quarter: 2025Q2

REPORT INFORMATION
  Report Type: Spontaneous
  Country: ES (occurrence: ES)
  Receive Date: 20200317
  Receipt Date: 20250621
  Transmission Date: 20250717
  Serious: Yes (Other)
  Sender: AUROBINDO
  Company Number: ES-002147023-NVSC2020ES059891

PATIENT
  Age: 38 Year
  Sex: Male

DRUGS (23)
  1. EFAVIRENZ [Suspect]
     Active Substance: EFAVIRENZ
     Indication: Antiretroviral therapy
     Route: 065
     Dates: start: 2001, end: 2001
  2. LAMIVUDINE [Suspect]
     Active Substance: LAMIVUDINE
     Indication: Antiretroviral therapy
     Route: 065
     Dates: start: 1997, end: 2001
  3. TENOFOVIR DISOPROXIL [Suspect]
     Active Substance: TENOFOVIR DISOPROXIL
     Indication: Antiretroviral therapy
     Route: 065
     Dates: start: 2002, end: 2011
  4. TENOFOVIR DISOPROXIL [Suspect]
     Active Substance: TENOFOVIR DISOPROXIL
     Indication: HIV infection
  5. ABACAVIR [Suspect]
     Active Substance: ABACAVIR
     Indication: Antiretroviral therapy
     Route: 065
     Dates: start: 2008, end: 2011
  6. DIDANOSINE [Suspect]
     Active Substance: DIDANOSINE
     Indication: HIV infection
     Route: 065
     Dates: start: 1994, end: 1997
  7. DIDANOSINE [Suspect]
     Active Substance: DIDANOSINE
     Indication: Antiretroviral therapy
     Route: 065
     Dates: start: 2001, end: 2008
  8. INDINAVIR [Suspect]
     Active Substance: INDINAVIR
     Indication: Antiretroviral therapy
     Route: 065
     Dates: start: 1994, end: 1998
  9. INDINAVIR [Suspect]
     Active Substance: INDINAVIR
     Route: 065
     Dates: start: 1997, end: 1998
  10. LOPINAVIR\RITONAVIR [Suspect]
     Active Substance: LOPINAVIR\RITONAVIR
     Indication: Antiretroviral therapy
     Dosage: 300/75 MG, TWO TIMES A DAY (DOSE ADJUSTMENT)
     Route: 065
     Dates: start: 201009, end: 201110
  11. LOPINAVIR\RITONAVIR [Suspect]
     Active Substance: LOPINAVIR\RITONAVIR
     Dosage: 400/100 MG TWO TIMES A DAY
     Route: 065
     Dates: start: 2002, end: 2010
  12. LOPINAVIR\RITONAVIR [Suspect]
     Active Substance: LOPINAVIR\RITONAVIR
     Dosage: 300/75 MG, TWO TIMES A DAY (MONOTHERAPY)
     Route: 065
     Dates: start: 201110, end: 2013
  13. LOPINAVIR\RITONAVIR [Suspect]
     Active Substance: LOPINAVIR\RITONAVIR
     Dosage: 200/50 MG , TWO TIMES A DAY
     Route: 065
     Dates: start: 2013, end: 2013
  14. LOPINAVIR\RITONAVIR [Suspect]
     Active Substance: LOPINAVIR\RITONAVIR
     Dosage: 300/75, TWO TIMES A DAY
     Route: 065
     Dates: start: 2013, end: 201510
  15. SAQUINAVIR [Suspect]
     Active Substance: SAQUINAVIR
     Indication: Antiretroviral therapy
     Route: 065
     Dates: start: 1996, end: 1997
  16. SAQUINAVIR [Suspect]
     Active Substance: SAQUINAVIR
     Indication: HIV infection
  17. NELFINAVIR [Suspect]
     Active Substance: NELFINAVIR
     Indication: HIV infection
     Route: 065
     Dates: start: 1998, end: 2002
  18. NELFINAVIR [Suspect]
     Active Substance: NELFINAVIR
     Indication: Antiretroviral therapy
  19. NEVIRAPINE [Suspect]
     Active Substance: NEVIRAPINE
     Indication: Antiretroviral therapy
     Route: 065
     Dates: start: 2001, end: 2002
  20. STAVUDINE [Suspect]
     Active Substance: STAVUDINE
     Indication: Antiretroviral therapy
     Route: 065
     Dates: start: 1997, end: 2001
  21. STAVUDINE [Suspect]
     Active Substance: STAVUDINE
     Route: 065
     Dates: start: 2002, end: 2002
  22. ZIDOVUDINE [Suspect]
     Active Substance: ZIDOVUDINE
     Indication: Antiretroviral therapy
     Route: 065
     Dates: start: 1994, end: 1997
  23. ZIDOVUDINE [Suspect]
     Active Substance: ZIDOVUDINE
     Indication: HIV infection

REACTIONS (18)
  - Neurotoxicity [Unknown]
  - Lipodystrophy acquired [Unknown]
  - Renal impairment [Recovered/Resolved]
  - Fanconi syndrome acquired [Recovered/Resolved]
  - Dyslipidaemia [Unknown]
  - Glycosuria [Recovered/Resolved]
  - Hypophosphataemia [Recovered/Resolved]
  - Proteinuria [Recovered/Resolved]
  - Chronic kidney disease [Recovered/Resolved]
  - Fatigue [Recovered/Resolved]
  - Asthenia [Recovered/Resolved]
  - Myalgia [Recovered/Resolved]
  - Musculoskeletal toxicity [Recovered/Resolved]
  - Musculoskeletal pain [Recovered/Resolved]
  - Pathological fracture [Unknown]
  - Virologic failure [Unknown]
  - Bone metabolism disorder [Recovered/Resolved]
  - Overdose [Unknown]

NARRATIVE: CASE EVENT DATE: 19960101
